FAERS Safety Report 7947275-X (Version None)
Quarter: 2011Q4

REPORT INFORMATION
  Report Type: 
  Country: None (occurrence: None)
  Receive Date: 20111129
  Receipt Date: 20111115
  Transmission Date: 20120403
  Serious: Yes (Other)
  Sender: FDA-Public Use
  Company Number: GB-MYLANLABS-2011S1004702

PATIENT
  Age: 61 Year
  Sex: Female

DRUGS (15)
  1. DILTIAZEM HCL [Suspect]
     Indication: PRODUCT USED FOR UNKNOWN INDICATION
     Route: 048
     Dates: start: 20101006, end: 20111104
  2. BENDROFLUMETHIAZIDE [Concomitant]
     Indication: PRODUCT USED FOR UNKNOWN INDICATION
     Dates: start: 20110113
  3. ASPIRIN [Concomitant]
     Indication: PRODUCT USED FOR UNKNOWN INDICATION
     Dates: start: 20101202
  4. BISOPROLOL FUMARATE [Suspect]
     Indication: PRODUCT USED FOR UNKNOWN INDICATION
     Dates: start: 20101001, end: 20101006
  5. RAMIPRIL [Suspect]
     Dates: start: 20101118
  6. UNSPECIFIED HERBAL [Concomitant]
     Indication: MIGRAINE
  7. DILTIAZEM HCL [Suspect]
     Indication: PRODUCT USED FOR UNKNOWN INDICATION
     Route: 048
  8. RAMIPRIL [Suspect]
     Indication: BLOOD PRESSURE
     Dates: start: 20101206, end: 20101216
  9. SIMVASTATIN [Concomitant]
     Indication: PRODUCT USED FOR UNKNOWN INDICATION
     Dates: start: 20100913
  10. LOSARTAN POTASSIUM [Concomitant]
     Indication: PRODUCT USED FOR UNKNOWN INDICATION
     Dates: start: 20101216
  11. LARREA TRIDENTATA [Concomitant]
     Indication: PRODUCT USED FOR UNKNOWN INDICATION
  12. DANDELION [Concomitant]
     Indication: POLYURIA
  13. INDAPAMIDE [Concomitant]
     Indication: PRODUCT USED FOR UNKNOWN INDICATION
     Dates: start: 20101001
  14. MEBEVERINE [Concomitant]
     Indication: PRODUCT USED FOR UNKNOWN INDICATION
  15. SOTALOL HCL [Concomitant]
     Indication: PRODUCT USED FOR UNKNOWN INDICATION

REACTIONS (8)
  - VISUAL IMPAIRMENT [None]
  - HYPOAESTHESIA [None]
  - DIZZINESS [None]
  - DRUG HYPERSENSITIVITY [None]
  - VISION BLURRED [None]
  - NAUSEA [None]
  - VERTIGO [None]
  - BLOOD PRESSURE INCREASED [None]
